FAERS Safety Report 7369232-7 (Version None)
Quarter: 2011Q1

REPORT INFORMATION
  Report Type: 
  Country: None (occurrence: None)
  Receive Date: 20110323
  Receipt Date: 20110315
  Transmission Date: 20110831
  Serious: Yes (Other)
  Sender: FDA-Public Use
  Company Number: JP-ROCHE-765549

PATIENT
  Sex: Male

DRUGS (13)
  1. PREDNISOLONE [Concomitant]
     Dates: start: 20090708
  2. BLINDED OCRELIZUMAB [Suspect]
     Indication: RHEUMATOID ARTHRITIS
     Route: 042
     Dates: start: 20080515
  3. LOXOPROFEN [Concomitant]
  4. TOCILIZUMAB [Suspect]
     Route: 065
     Dates: start: 20100819
  5. FOLIC ACID [Concomitant]
     Dates: start: 20060403
  6. METHOTREXATE [Concomitant]
     Dates: start: 20051006
  7. ISONIAZID [Concomitant]
     Dates: start: 20051214
  8. PREDNISOLONE [Concomitant]
  9. TEPRENONE [Concomitant]
     Dates: start: 20080521
  10. PREDNISOLONE [Concomitant]
     Dosage: NAME REPORTED AS: PSL
     Dates: start: 20081224
  11. LOXOPROFEN [Concomitant]
     Dosage: DOSE INCREASED.
     Dates: start: 20080521
  12. OCRELIZUMAB [Suspect]
     Indication: RHEUMATOID ARTHRITIS
     Dosage: LAST DOSE PRIOR TO SAE: 13 OCT 2009
     Route: 042
     Dates: start: 20091013
  13. PREDNISOLONE [Concomitant]
     Dosage: DOSE INCREASED.
     Dates: start: 20080521

REACTIONS (1)
  - LYMPHOMA [None]
